FAERS Safety Report 6527326-X (Version None)
Quarter: 2010Q1

REPORT INFORMATION
  Report Type: 
  Country: None (occurrence: None)
  Receive Date: 20100104
  Receipt Date: 20100104
  Transmission Date: 20100710
  Serious: Yes (Hospitalization)
  Sender: FDA-Public Use
  Company Number: None

PATIENT
  Age: 83 Year
  Sex: Male
  Weight: 68 kg

DRUGS (20)
  1. EXELON [Suspect]
     Indication: DEMENTIA ALZHEIMER'S TYPE
     Dosage: 9.5MG DAILY TOP CHRONIC
     Route: 061
  2. DICYCLOMINE [Suspect]
     Dosage: 50MG DAILY PO CHRONIC
     Route: 048
  3. NAMENDA [Concomitant]
  4. HALDOL [Concomitant]
  5. EXELON [Concomitant]
  6. BENTYL [Concomitant]
  7. TYLENOL (CAPLET) [Concomitant]
  8. VIT D [Concomitant]
  9. ATIVAN [Concomitant]
  10. M.V.I. [Concomitant]
  11. RISPERDAL [Concomitant]
  12. COMBIVENT [Concomitant]
  13. PROSCAR [Concomitant]
  14. ZETIA [Concomitant]
  15. NITRO-DUR [Concomitant]
  16. OMEGA 3 FATTY ACIDS [Concomitant]
  17. FISH OIL [Concomitant]
  18. FOLIC ACID [Concomitant]
  19. THIAMINE [Concomitant]
  20. ALL CLONIC MEDS [Concomitant]

REACTIONS (2)
  - DEHYDRATION [None]
  - MENTAL STATUS CHANGES [None]
